FAERS Safety Report 24931989 (Version 1)
Quarter: 2025Q1

REPORT INFORMATION
  Report Type: Report from Study
  Country: US (occurrence: US)
  Receive Date: 20250205
  Receipt Date: 20250205
  Transmission Date: 20250408
  Serious: No
  Sender: EXELIXIS
  Company Number: US-EXELIXIS-CABO-24079373

PATIENT
  Sex: Female

DRUGS (17)
  1. CABOMETYX [Suspect]
     Active Substance: CABOZANTINIB S-MALATE
     Indication: Malignant connective tissue neoplasm
     Dates: start: 20240625, end: 20240710
  2. CABOMETYX [Suspect]
     Active Substance: CABOZANTINIB S-MALATE
     Indication: Soft tissue sarcoma
  3. CABOMETYX [Suspect]
     Active Substance: CABOZANTINIB S-MALATE
     Indication: Angiosarcoma
  4. NIVOLUMAB [Suspect]
     Active Substance: NIVOLUMAB
     Indication: Malignant connective tissue neoplasm
     Dates: start: 20240625
  5. NIVOLUMAB [Suspect]
     Active Substance: NIVOLUMAB
     Indication: Soft tissue sarcoma
  6. NIVOLUMAB [Suspect]
     Active Substance: NIVOLUMAB
     Indication: Angiosarcoma
  7. ALPRAZOLAM [Concomitant]
     Active Substance: ALPRAZOLAM
  8. LEVOTHYROXINE [Concomitant]
     Active Substance: LEVOTHYROXINE
  9. HERBALS [Concomitant]
     Active Substance: HERBALS
  10. VITAMIN B6 [Concomitant]
     Active Substance: PYRIDOXINE HYDROCHLORIDE
  11. VITAMIN B12 [Concomitant]
     Active Substance: CYANOCOBALAMIN
  12. FOLIC ACID [Concomitant]
     Active Substance: FOLIC ACID
  13. MAGNESIUM [Concomitant]
     Active Substance: MAGNESIUM
  14. CALCIUM CITRATE [Concomitant]
     Active Substance: CALCIUM CITRATE
  15. FISH OIL [Concomitant]
     Active Substance: FISH OIL
  16. OMEGA 3 [Concomitant]
     Active Substance: CAPSAICIN
  17. THIAMINE [Concomitant]
     Active Substance: THIAMINE

REACTIONS (15)
  - Drug intolerance [Unknown]
  - Taste disorder [Unknown]
  - Asthenia [Unknown]
  - Dizziness [Unknown]
  - Dysphonia [Recovering/Resolving]
  - Weight decreased [Unknown]
  - Nausea [Unknown]
  - Diarrhoea [Unknown]
  - Decreased appetite [Unknown]
  - Rash [Recovering/Resolving]
  - Pruritus [Unknown]
  - Headache [Unknown]
  - Fatigue [Unknown]
  - Illness [Unknown]
  - Off label use [Unknown]
